FAERS Safety Report 19078124 (Version 1)
Quarter: 2021Q1

REPORT INFORMATION
  Report Type: Report from Study
  Country: US (occurrence: US)
  Receive Date: 20210331
  Receipt Date: 20210331
  Transmission Date: 20210420
  Serious: Yes (Hospitalization)
  Sender: FDA-Public Use
  Company Number: US-ARBOR PHARMACEUTICALS, LLC-US-2021ARB000345

PATIENT
  Sex: Male

DRUGS (3)
  1. TRIPTODUR [Suspect]
     Active Substance: TRIPTORELIN
  2. TRIPTODUR [Suspect]
     Active Substance: TRIPTORELIN
     Indication: PRODUCT USED FOR UNKNOWN INDICATION
     Dosage: UNK, SINGLE
     Route: 030
     Dates: start: 20210201, end: 20210201
  3. TRIPTODUR [Suspect]
     Active Substance: TRIPTORELIN

REACTIONS (5)
  - Restlessness [Unknown]
  - Hypertrichosis [Unknown]
  - Renal transplant [Unknown]
  - Hormone level abnormal [Unknown]
  - Testicular hypertrophy [Unknown]

NARRATIVE: CASE EVENT DATE: 2021
